FAERS Safety Report 5968929-0 (Version None)
Quarter: 2008Q4

REPORT INFORMATION
  Report Type: 
  Country: None (occurrence: None)
  Receive Date: 20081125
  Receipt Date: 20081125
  Transmission Date: 20090506
  Serious: Yes (Other)
  Sender: FDA-Public Use
  Company Number: None

PATIENT
  Age: 53 Year
  Sex: Male
  Weight: 65.7716 kg

DRUGS (2)
  1. FLOVENT HFA [Suspect]
     Indication: ASTHMA
     Dosage: 1 PUFF TWICE A DAY INHAL
     Route: 055
  2. PROAIR HFA [Suspect]
     Indication: ASTHMA

REACTIONS (2)
  - DEVICE INEFFECTIVE [None]
  - PRODUCT QUALITY ISSUE [None]
